FAERS Safety Report 7277985-1 (Version None)
Quarter: 2011Q1

REPORT INFORMATION
  Report Type: 
  Country: None (occurrence: None)
  Receive Date: 20110207
  Receipt Date: 20110111
  Transmission Date: 20110831
  Serious: No
  Sender: FDA-Public Use
  Company Number: US-PFIZER INC-2010073590

PATIENT
  Age: 80 Year
  Sex: Male

DRUGS (10)
  1. LISINOPRIL [Suspect]
     Indication: ARRHYTHMIA
     Dosage: 5 MG, 1X/DAY
     Route: 048
     Dates: start: 20091001, end: 20091101
  2. ATACAND [Suspect]
     Indication: ARRHYTHMIA
     Dosage: UNK
     Dates: start: 20100401
  3. NEBIVOLOL HCL [Suspect]
     Dosage: 5 MG, DAILY
     Dates: start: 20101228
  4. NEBIVOLOL HCL [Suspect]
     Dosage: 7.5 MG, 1X/DAY
     Route: 048
     Dates: start: 20091101, end: 20100527
  5. NEBIVOLOL HCL [Suspect]
     Dosage: 5 MG, 1X/DAY
     Route: 048
     Dates: start: 20100528, end: 20101001
  6. ACCUPRIL [Suspect]
     Indication: ARRHYTHMIA
     Dosage: UNK
     Dates: start: 20100528, end: 20100528
  7. LISINOPRIL [Suspect]
     Indication: ARRHYTHMIA
     Dosage: UNK
     Dates: start: 20100401, end: 20100401
  8. NEBIVOLOL HCL [Suspect]
     Dosage: 2.5 MG, DAILY
     Dates: start: 20101001
  9. ACETYLSALICYLIC ACID [Concomitant]
     Dosage: 325 MG, 1X/DAY
     Route: 048
  10. LUNESTA [Concomitant]
     Indication: INSOMNIA
     Dosage: 3 MG, 1X/DAY
     Route: 048

REACTIONS (5)
  - DIZZINESS [None]
  - CHEST PAIN [None]
  - HEADACHE [None]
  - ASTHENIA [None]
  - TREMOR [None]
